FAERS Safety Report 6933363-3 (Version None)
Quarter: 2010Q3

REPORT INFORMATION
  Report Type: 
  Country: None (occurrence: None)
  Receive Date: 20100820
  Receipt Date: 20100813
  Transmission Date: 20110219
  Serious: Yes (Death)
  Sender: FDA-Public Use
  Company Number: GB-BAYER-201036280GPV

PATIENT

DRUGS (4)
  1. ALEMTUZUMAB [Suspect]
     Indication: T-CELL DEPLETION
     Dosage: ON DAYS -8 TO -4, 100 MG (20 MG/D) OR LESS (60 MG OR 40 MG OR 30 MG OR 20 MG)
  2. FLUDARABINE [Suspect]
     Indication: BONE MARROW CONDITIONING REGIMEN
     Dosage: ON DAYS -7 TO -3
  3. MELPHALAN [Suspect]
     Indication: BONE MARROW CONDITIONING REGIMEN
     Dosage: TOTAL DAILY DOSE: 140 MG/M2
  4. CYCLOSPORINE [Suspect]
     Indication: PROPHYLAXIS AGAINST GRAFT VERSUS HOST DISEASE
     Dosage: FROM DAY -1 AND TAPERED FROM 3 MONTHS
     Route: 042

REACTIONS (1)
  - ENCEPHALOPATHY [None]
